FAERS Safety Report 5871599-3 (Version None)
Quarter: 2008Q3

REPORT INFORMATION
  Report Type: 
  Country: None (occurrence: None)
  Receive Date: 20080904
  Receipt Date: 20080904
  Transmission Date: 20090109
  Serious: Yes (Other)
  Sender: FDA-Public Use
  Company Number: None

PATIENT
  Sex: Female
  Weight: 33.5662 kg

DRUGS (4)
  1. AMITIZA [Suspect]
     Indication: CONSTIPATION
     Dosage: 1 2X DAILY MOUTH
     Route: 048
     Dates: start: 20080801
  2. AMITIZA [Suspect]
     Indication: IRRITABLE BOWEL SYNDROME
     Dosage: 1 2X DAILY MOUTH
     Route: 048
     Dates: start: 20080801
  3. AMITIZA [Suspect]
     Indication: CONSTIPATION
     Dosage: 1 2X DAILY MOUTH
     Route: 048
     Dates: start: 20080812
  4. AMITIZA [Suspect]
     Indication: IRRITABLE BOWEL SYNDROME
     Dosage: 1 2X DAILY MOUTH
     Route: 048
     Dates: start: 20080812

REACTIONS (6)
  - ASTHENIA [None]
  - DIZZINESS [None]
  - EXCORIATION [None]
  - LOSS OF CONSCIOUSNESS [None]
  - SKIN INJURY [None]
  - SYNCOPE [None]
